FAERS Safety Report 9813233 (Version 1)
Quarter: 2014Q1

REPORT INFORMATION
  Report Type: Spontaneous
  Country: US (occurrence: None)
  Receive Date: 20140110
  Receipt Date: 20140110
  Transmission Date: 20141002
  Serious: Yes (Other)
  Sender: FDA-Public Use
  Company Number: None

PATIENT
  Age: 16 Year
  Sex: Female
  Weight: 65.77 kg

DRUGS (1)
  1. METHYLPHENIDATE HYDROCHLORIDE EX [Suspect]
     Indication: ATTENTION DEFICIT/HYPERACTIVITY DISORDER
     Dosage: TAKEN BY MOUTH
     Route: 048

REACTIONS (4)
  - Anxiety [None]
  - Fatigue [None]
  - Hypersomnia [None]
  - Drug ineffective [None]
